FAERS Safety Report 7319520-5 (Version None)
Quarter: 2011Q1

REPORT INFORMATION
  Report Type: 
  Country: None (occurrence: None)
  Receive Date: 20110228
  Receipt Date: 20100428
  Transmission Date: 20110831
  Serious: No
  Sender: FDA-Public Use
  Company Number: A0857085A

PATIENT
  Age: 18 Year
  Sex: Female

DRUGS (3)
  1. YAZ [Suspect]
     Indication: MENSTRUAL DISORDER
     Route: 048
     Dates: start: 20090801
  2. LAMOTRIGINE [Suspect]
     Indication: MOOD SWINGS
     Dosage: 300MG PER DAY
     Route: 048
     Dates: start: 20080101
  3. NO CONCURRENT MEDICATION [Concomitant]

REACTIONS (1)
  - DRUG SCREEN FALSE POSITIVE [None]
